FAERS Safety Report 15780579 (Version 1)
Quarter: 2019Q1

REPORT INFORMATION
  Report Type: Spontaneous
  Country: BR (occurrence: BR)
  Receive Date: 20190102
  Receipt Date: 20190102
  Transmission Date: 20190417
  Serious: Yes (Other)
  Sender: FDA-Public Use
  Company Number: BR-MYLANLABS-2018M1097276

PATIENT
  Age: 64 Year
  Sex: Female

DRUGS (7)
  1. ESTRADIOL. [Suspect]
     Active Substance: ESTRADIOL
     Dosage: 4 PUMPS, QD
     Route: 062
     Dates: start: 20181217
  2. ESTRADIOL. [Suspect]
     Active Substance: ESTRADIOL
     Dosage: 4 PUMPS, QD
     Route: 062
     Dates: start: 20181217
  3. ROSUVASTATIN. [Concomitant]
     Active Substance: ROSUVASTATIN
     Indication: BLOOD CHOLESTEROL
     Dosage: 1 DOSAGE FORM, QD
     Route: 048
     Dates: start: 2008
  4. ESTRADIOL. [Suspect]
     Active Substance: ESTRADIOL
     Indication: PRE-EXISTING CONDITION IMPROVED
     Dosage: 3 PUMPS, QD
     Route: 062
  5. GLIFAGE [Concomitant]
     Active Substance: METFORMIN HYDROCHLORIDE
     Indication: DIABETES MELLITUS
     Dosage: 2 DOSAGE FORM, QD
     Route: 048
     Dates: start: 2008
  6. ESTRADIOL. [Suspect]
     Active Substance: ESTRADIOL
     Indication: HORMONE REPLACEMENT THERAPY
     Dosage: 2 PUMPS, QD ON FOREARMS, THIGHS AND ABDOMEN
     Route: 062
     Dates: start: 201807, end: 201808
  7. LOTAR                              /01121602/ [Concomitant]
     Indication: BLOOD PRESSURE MEASUREMENT
     Dosage: 1 DOSAGE FORM, QD
     Route: 048
     Dates: start: 1993

REACTIONS (2)
  - Haemorrhage [Unknown]
  - Hot flush [Unknown]

NARRATIVE: CASE EVENT DATE: 201808
